FAERS Safety Report 20749129 (Version 1)
Quarter: 2022Q2

REPORT INFORMATION
  Report Type: Spontaneous
  Country: IT (occurrence: IT)
  Receive Date: 20220426
  Receipt Date: 20220426
  Transmission Date: 20220720
  Serious: Yes (Hospitalization)
  Sender: FDA-Public Use
  Company Number: None

PATIENT
  Age: 20 Year
  Sex: Female
  Weight: 90 kg

DRUGS (7)
  1. FLUOXETINE [Suspect]
     Active Substance: FLUOXETINE HYDROCHLORIDE
     Indication: Personality disorder
     Dosage: TOTAL
     Route: 048
     Dates: start: 20220101, end: 20220320
  2. FLURAZEPAM HYDROCHLORIDE [Suspect]
     Active Substance: FLURAZEPAM HYDROCHLORIDE
     Indication: Personality disorder
     Dosage: TOTAL
     Dates: start: 20220101, end: 20220320
  3. RIVOTRIL [Concomitant]
     Active Substance: CLONAZEPAM
  4. OLANZAPINE [Concomitant]
     Active Substance: OLANZAPINE
  5. TALOFEN [Concomitant]
     Active Substance: PROMAZINE HYDROCHLORIDE
  6. DELORAZEPAM [Concomitant]
     Active Substance: DELORAZEPAM
  7. CLOTHIAPINE [Concomitant]
     Active Substance: CLOTHIAPINE

REACTIONS (5)
  - Drug abuse [Unknown]
  - Poisoning [Unknown]
  - Toxicity to various agents [Unknown]
  - Sopor [Recovering/Resolving]
  - Intentional self-injury [Unknown]

NARRATIVE: CASE EVENT DATE: 20220320
